FAERS Safety Report 7633915-1 (Version None)
Quarter: 2011Q3

REPORT INFORMATION
  Report Type: 
  Country: None (occurrence: None)
  Receive Date: 20110725
  Receipt Date: 20110715
  Transmission Date: 20111222
  Serious: Yes (Other)
  Sender: FDA-Public Use
  Company Number: US-ABBOTT-11P-163-0839368-00

PATIENT
  Sex: Male
  Weight: 70.37 kg

DRUGS (9)
  1. PHENERGAN HCL [Concomitant]
     Indication: PROPHYLAXIS OF NAUSEA AND VOMITING
  2. HUMIRA [Suspect]
     Dates: end: 20090901
  3. DILAUDID [Concomitant]
     Indication: PAIN
  4. CIPROFLOXACIN HCL [Concomitant]
     Indication: INFECTION PROPHYLAXIS
  5. ATIVAN [Concomitant]
     Indication: ANXIETY
  6. PREDNISONE [Concomitant]
     Indication: CROHN'S DISEASE
  7. METHADON AMIDONE HCL TAB [Concomitant]
     Indication: PAIN
  8. HUMIRA [Suspect]
     Indication: CROHN'S DISEASE
     Dates: start: 20100501
  9. FLAGYL [Concomitant]
     Indication: INFECTION PROPHYLAXIS

REACTIONS (9)
  - SMALL INTESTINAL PERFORATION [None]
  - ABDOMINAL PAIN [None]
  - CROHN'S DISEASE [None]
  - VOMITING [None]
  - FLANK PAIN [None]
  - DRUG EFFECT DECREASED [None]
  - PAIN IN EXTREMITY [None]
  - LOCALISED INTRAABDOMINAL FLUID COLLECTION [None]
  - GAIT DISTURBANCE [None]
